FAERS Safety Report 11643831 (Version 1)
Quarter: 2015Q4

REPORT INFORMATION
  Report Type: Spontaneous
  Country: US (occurrence: US)
  Receive Date: 20151020
  Receipt Date: 20151020
  Transmission Date: 20160304
  Serious: No
  Sender: FDA-Public Use
  Company Number: US-BAYER-2015-447217

PATIENT
  Age: 17 Year
  Sex: Male
  Weight: 66.67 kg

DRUGS (2)
  1. CLARITIN REDITABS [Suspect]
     Active Substance: LORATADINE
     Dosage: UNK DF, UNK
  2. ADVIL [Concomitant]
     Active Substance: IBUPROFEN

REACTIONS (3)
  - Product use issue [None]
  - Oropharyngeal pain [None]
  - Extra dose administered [None]

NARRATIVE: CASE EVENT DATE: 20151016
